FAERS Safety Report 5403769-2 (Version None)
Quarter: 2007Q3

REPORT INFORMATION
  Report Type: 
  Country: None (occurrence: None)
  Receive Date: 20070713
  Receipt Date: 20070531
  Transmission Date: 20080115
  Serious: Yes (Other)
  Sender: FDA-Public Use
  Company Number: 2007044088

PATIENT
  Sex: Female

DRUGS (1)
  1. DEPO-SUBQ PROVERA 104 [Suspect]
     Dosage: SUBCUTANEOUS
     Route: 058

REACTIONS (1)
  - INJECTION SITE REACTION [None]
